FAERS Safety Report 22176027 (Version 1)
Quarter: 2023Q2

REPORT INFORMATION
  Report Type: Spontaneous
  Country: US (occurrence: None)
  Receive Date: 20230405
  Receipt Date: 20230405
  Transmission Date: 20230721
  Serious: No
  Sender: FDA-Public Use
  Company Number: 2023A061308

PATIENT
  Age: 57 Year
  Sex: Female
  Weight: 120.2 kg

DRUGS (8)
  1. OMEPRAZOLE [Suspect]
     Active Substance: OMEPRAZOLE
     Route: 048
  2. PFIZER-BIONTECH COVID-19 VACCINE [Suspect]
     Active Substance: TOZINAMERAN
  3. PFIZER-BIONTECH COVID-19 VACCINE [Suspect]
     Active Substance: TOZINAMERAN
     Dates: start: 20210202
  4. PFIZER-BIONTECH COVID-19 VACCINE [Suspect]
     Active Substance: TOZINAMERAN
     Dates: start: 20210223
  5. ALBUTEROL [Concomitant]
     Active Substance: ALBUTEROL
  6. BREO ELLIPTA [Concomitant]
     Active Substance: FLUTICASONE FUROATE\VILANTEROL TRIFENATATE
  7. BENTYL [Concomitant]
     Active Substance: DICYCLOMINE HYDROCHLORIDE
     Route: 048
  8. CARAFATE [Concomitant]
     Active Substance: SUCRALFATE
     Route: 048

REACTIONS (20)
  - Impaired gastric emptying [Unknown]
  - Vocal cord disorder [Unknown]
  - Dyspnoea [Unknown]
  - Palpitations [Unknown]
  - Dyspepsia [Unknown]
  - Weight decreased [Unknown]
  - Vagus nerve disorder [Unknown]
  - COVID-19 [Unknown]
  - Vestibular disorder [Unknown]
  - Serum ferritin increased [Unknown]
  - Gastrooesophageal reflux disease [Unknown]
  - Hiatus hernia [Unknown]
  - Bladder disorder [Unknown]
  - Blood pressure increased [Unknown]
  - Essential thrombocythaemia [Unknown]
  - Inflammatory marker increased [Unknown]
  - Dizziness [Unknown]
  - Vision blurred [Unknown]
  - Hepatic enzyme abnormal [Unknown]
  - Malaise [Unknown]

NARRATIVE: CASE EVENT DATE: 20210920
